FAERS Safety Report 14995273 (Version 1)
Quarter: 2018Q2

REPORT INFORMATION
  Report Type: Spontaneous
  Country: US (occurrence: US)
  Receive Date: 20180611
  Receipt Date: 20180611
  Transmission Date: 20180711
  Serious: Yes (Other)
  Sender: FDA-Public Use
  Company Number: US-SA-2017SA265836

PATIENT
  Age: 49 Year
  Sex: Female
  Weight: 68 kg

DRUGS (6)
  1. TAXOTERE [Suspect]
     Active Substance: DOCETAXEL
     Indication: BREAST CANCER FEMALE
     Dosage: UNK UNK,Q3W
     Route: 042
     Dates: start: 20140509, end: 20140509
  2. TAXOL [Concomitant]
     Active Substance: PACLITAXEL
  3. BENADRYL A [Concomitant]
     Active Substance: DIPHENHYDRAMINE HYDROCHLORIDE
  4. TAXOTERE [Suspect]
     Active Substance: DOCETAXEL
     Dosage: UNK UNK,Q3W
     Route: 042
     Dates: start: 20140707, end: 20140707
  5. MOTRIN [Concomitant]
     Active Substance: IBUPROFEN
  6. CLARITINE [Concomitant]
     Active Substance: LORATADINE

REACTIONS (2)
  - Alopecia [Recovering/Resolving]
  - Psychological trauma [Recovering/Resolving]

NARRATIVE: CASE EVENT DATE: 201501
